FAERS Safety Report 6779522-4 (Version None)
Quarter: 2010Q2

REPORT INFORMATION
  Report Type: 
  Country: None (occurrence: None)
  Receive Date: 20100618
  Receipt Date: 20100607
  Transmission Date: 20101027
  Serious: Yes (Hospitalization)
  Sender: FDA-Public Use
  Company Number: US-MYLANLABS-2010S1002306

PATIENT
  Age: 64 Year
  Sex: Female
  Weight: 80.29 kg

DRUGS (11)
  1. NITROFURANTOIN [Suspect]
     Indication: CYSTITIS
     Route: 048
     Dates: start: 20091101, end: 20091104
  2. NITROFURANTOIN [Suspect]
     Indication: KIDNEY INFECTION
     Route: 048
     Dates: start: 20091101, end: 20091104
  3. NITROFURANTOIN [Suspect]
     Indication: URINARY TRACT INFECTION
     Route: 048
     Dates: start: 20091101, end: 20091104
  4. ROPINIROLE [Concomitant]
     Indication: RESTLESS LEGS SYNDROME
     Route: 048
  5. PROZAC [Concomitant]
     Indication: DEPRESSION
     Route: 048
  6. GABAPENTIN [Concomitant]
     Indication: RESTLESS LEGS SYNDROME
     Route: 048
  7. PRILOSEC [Concomitant]
     Route: 048
  8. XALATAN [Concomitant]
     Route: 047
  9. PHENAZOPYRIDINE HCL TAB [Concomitant]
     Dosage: PRN PAIN
     Route: 048
  10. VICODIN [Concomitant]
     Dosage: PRN
     Route: 048
  11. LUNESTA [Concomitant]
     Dosage: PRN
     Route: 048

REACTIONS (22)
  - ACUTE RESPIRATORY FAILURE [None]
  - ASTHENIA [None]
  - CHEST PAIN [None]
  - CHILLS [None]
  - CYANOSIS [None]
  - DYSPNOEA [None]
  - HEADACHE [None]
  - HYPOTENSION [None]
  - HYPOXIA [None]
  - INTERSTITIAL LUNG DISEASE [None]
  - LOSS OF CONSCIOUSNESS [None]
  - LUNG INFILTRATION [None]
  - MALAISE [None]
  - PAIN [None]
  - PLEURAL EFFUSION [None]
  - PNEUMONIA [None]
  - PNEUMONIA VIRAL [None]
  - PNEUMONITIS [None]
  - POISONING [None]
  - PRURITUS [None]
  - PULMONARY TOXICITY [None]
  - PYREXIA [None]
